FAERS Safety Report 9049493 (Version 1)
Quarter: 2013Q1

REPORT INFORMATION
  Report Type: Spontaneous
  Country: US (occurrence: US)
  Receive Date: 20130205
  Receipt Date: 20130205
  Transmission Date: 20140127
  Serious: No
  Sender: FDA-Public Use
  Company Number: US-ASTRAZENECA-2012SE91777

PATIENT
  Age: 72 Year
  Sex: Female

DRUGS (1)
  1. SEROQUEL XR [Suspect]
     Route: 048

REACTIONS (5)
  - Emotional disorder [Unknown]
  - Gait disturbance [Unknown]
  - Malaise [Unknown]
  - Muscular weakness [Unknown]
  - Drug dose omission [Unknown]
